FAERS Safety Report 5781658-1 (Version None)
Quarter: 2008Q2

REPORT INFORMATION
  Report Type: 
  Country: None (occurrence: None)
  Receive Date: 20080623
  Receipt Date: 20080609
  Transmission Date: 20081010
  Serious: Yes (Hospitalization)
  Sender: FDA-Public Use
  Company Number: FR-ROCHE-566301

PATIENT
  Age: 9 Year
  Sex: Female
  Weight: 30 kg

DRUGS (1)
  1. CLONAZEPAM [Suspect]
     Indication: DRUG USE FOR UNKNOWN INDICATION
     Dosage: DOSAGE: 20 GRAM TWICE
     Route: 048
     Dates: start: 20080520

REACTIONS (8)
  - AGGRESSION [None]
  - AGITATION [None]
  - ATAXIA [None]
  - BALANCE DISORDER [None]
  - HALLUCINATION, VISUAL [None]
  - SLEEP DISORDER [None]
  - SPEECH DISORDER [None]
  - WRONG DRUG ADMINISTERED [None]
